FAERS Safety Report 15593866 (Version 1)
Quarter: 2018Q4

REPORT INFORMATION
  Report Type: Spontaneous
  Country: US (occurrence: US)
  Receive Date: 20181106
  Receipt Date: 20181106
  Transmission Date: 20190205
  Serious: No
  Sender: FDA-Public Use
  Company Number: US-PFIZER INC-2018454332

PATIENT
  Age: 54 Year

DRUGS (1)
  1. LYRICA [Suspect]
     Active Substance: PREGABALIN
     Dosage: UNK, 1X/DAY (TAKING THEM AT NIGHT)

REACTIONS (3)
  - Product dose omission [Unknown]
  - Neuralgia [Unknown]
  - Product use issue [Unknown]
